FAERS Safety Report 9643840 (Version 2)
Quarter: 2014Q2

REPORT INFORMATION
  Report Type: Spontaneous
  Country: US (occurrence: US)
  Receive Date: 20131024
  Receipt Date: 20140610
  Transmission Date: 20141212
  Serious: Yes (Death, Other)
  Sender: FDA-Public Use
  Company Number: US-INCYTE CORPORATION-2013IN002504

PATIENT
  Age: 70 Year
  Sex: Female

DRUGS (2)
  1. JAKAFI [Suspect]
     Indication: MYELOFIBROSIS
     Dosage: 10 MG, BID
     Route: 048
     Dates: start: 2011
  2. DECITABINE [Concomitant]

REACTIONS (5)
  - Myelofibrosis [Fatal]
  - Disease progression [Fatal]
  - Malignant pleural effusion [Fatal]
  - Malignant transformation [None]
  - Leukaemia cutis [None]
